FAERS Safety Report 21389131 (Version 4)
Quarter: 2023Q1

REPORT INFORMATION
  Report Type: Report from Study
  Country: US (occurrence: US)
  Receive Date: 20220929
  Receipt Date: 20230331
  Transmission Date: 20230418
  Serious: Yes (Death, Life-Threatening, Hospitalization)
  Sender: FDA-Public Use
  Company Number: US-JNJFOC-20220950638

PATIENT
  Age: 47 Year
  Sex: Male
  Weight: 109.1 kg

DRUGS (7)
  1. CILTACABTAGENE AUTOLEUCEL [Suspect]
     Active Substance: CILTACABTAGENE AUTOLEUCEL
     Indication: Leukaemia recurrent
     Dosage: 0.3 X 10^6  CAR-T VIABLE T CELLS/KG
     Route: 042
     Dates: start: 20220909, end: 20220909
  2. AMIODARONE [Concomitant]
     Active Substance: AMIODARONE
     Indication: Supraventricular tachycardia
     Dosage: 1.8 MG/ML
     Route: 042
     Dates: start: 20220909, end: 20220917
  3. HYDROCORTISONE [Concomitant]
     Active Substance: HYDROCORTISONE
     Indication: Adrenal insufficiency
     Dosage: 50-100 MG
     Route: 042
     Dates: start: 20220818, end: 20220917
  4. PHENYLEPHRINE [Concomitant]
     Active Substance: PHENYLEPHRINE HYDROCHLORIDE
     Indication: Hypotension
     Dosage: 400 MCG/ML
     Route: 042
     Dates: start: 20220909
  5. VANCOMYCIN [Concomitant]
     Active Substance: VANCOMYCIN
     Indication: Pyrexia
     Route: 042
     Dates: start: 20220908, end: 20220917
  6. VANCOMYCIN [Concomitant]
     Active Substance: VANCOMYCIN
     Indication: Antibiotic prophylaxis
  7. OXYGEN [Concomitant]
     Active Substance: OXYGEN
     Indication: Hypoxia
     Dosage: 4 L TO 60 L  HIGH FLOW NASAL CANNULA (HFNC)
     Dates: start: 20220912, end: 20220917

REACTIONS (4)
  - Multiple organ dysfunction syndrome [Fatal]
  - Immune effector cell-associated neurotoxicity syndrome [Not Recovered/Not Resolved]
  - Cytokine release syndrome [Recovering/Resolving]
  - Off label use [Unknown]

NARRATIVE: CASE EVENT DATE: 20220913
